FAERS Safety Report 4729875-3 (Version None)
Quarter: 2005Q3

REPORT INFORMATION
  Report Type: 
  Country: None (occurrence: None)
  Receive Date: 20050728
  Receipt Date: 20050715
  Transmission Date: 20060218
  Serious: Yes (Hospitalization)
  Sender: FDA-Public Use
  Company Number: HQWYE276119JUL05

PATIENT
  Age: 84 Year
  Sex: Male

DRUGS (4)
  1. MINOCIN [Suspect]
     Indication: PNEUMONIA
     Dosage: 200 MG 1X PER 1 DAY, INTRAVENOUS DRIP
     Route: 041
     Dates: start: 20050526, end: 20050606
  2. PRODIF (FOSFLUCONAZOLE, ) [Suspect]
     Dosage: INTRAVENOUS DRIP
     Route: 041
     Dates: start: 20050601, end: 20050606
  3. SULPERAZON (CEFOPERAZONE SODIUM/SULBACTAM SODIUM, ) [Suspect]
     Dosage: 2 GRAMS DAILY, INTRAVENOUS DRIP
     Route: 041
     Dates: start: 20050525, end: 20050526
  4. TIENAM (CILASTATIN/IMIPENEM, ) [Suspect]
     Dosage: 1 GRAM DAILY, INTRAVENOUS
     Route: 042
     Dates: start: 20050526, end: 20050606

REACTIONS (4)
  - CONDITION AGGRAVATED [None]
  - INTERSTITIAL LUNG DISEASE [None]
  - LYMPHOCYTE STIMULATION TEST POSITIVE [None]
  - PNEUMONIA [None]
